FAERS Safety Report 8390467-9 (Version None)
Quarter: 2012Q2

REPORT INFORMATION
  Report Type: 
  Country: None (occurrence: None)
  Receive Date: 20120529
  Receipt Date: 20120522
  Transmission Date: 20120825
  Serious: Yes (Life-Threatening, Hospitalization)
  Sender: FDA-Public Use
  Company Number: CZ-SANOFI-AVENTIS-2012SA036342

PATIENT
  Age: 20 Year
  Sex: Female

DRUGS (8)
  1. LANTUS [Suspect]
     Route: 058
     Dates: start: 20120517
  2. LANTUS [Suspect]
     Route: 058
  3. LANTUS [Suspect]
     Route: 058
     Dates: start: 20120517
  4. HUMALOG [Suspect]
     Route: 058
  5. HUMALOG [Suspect]
     Indication: SUICIDE ATTEMPT
     Route: 058
  6. HUMALOG [Suspect]
     Route: 058
     Dates: start: 20120517
  7. LANTUS [Suspect]
     Indication: SUICIDE ATTEMPT
     Route: 058
  8. HUMALOG [Suspect]
     Route: 058
     Dates: start: 20120517

REACTIONS (3)
  - SUICIDE ATTEMPT [None]
  - INTENTIONAL OVERDOSE [None]
  - HYPOGLYCAEMIA [None]
